FAERS Safety Report 7573077-2 (Version None)
Quarter: 2011Q2

REPORT INFORMATION
  Report Type: 
  Country: None (occurrence: None)
  Receive Date: 20110627
  Receipt Date: 20110616
  Transmission Date: 20111010
  Serious: Yes (Other)
  Sender: FDA-Public Use
  Company Number: GB-SANOFI-AVENTIS-2011SA038446

PATIENT
  Sex: Female

DRUGS (1)
  1. FEXOFENADINE HCL [Suspect]
     Route: 048
     Dates: start: 20110401, end: 20110517

REACTIONS (4)
  - DEAFNESS [None]
  - DRY SKIN [None]
  - SWELLING FACE [None]
  - NODULE [None]
